FAERS Safety Report 4435721-8 (Version None)
Quarter: 2004Q3

REPORT INFORMATION
  Report Type: 
  Country: None (occurrence: None)
  Receive Date: 20040828
  Receipt Date: 20040820
  Transmission Date: 20050211
  Serious: Yes (Death, Hospitalization)
  Sender: FDA-Public Use
  Company Number: FR-MERCK-0408FRA00043

PATIENT
  Age: 50 Year
  Sex: Female
  Weight: 87 kg

DRUGS (10)
  1. AMILORIDE AND FUROSEMIDE [Suspect]
     Indication: HYPERTENSION
     Route: 048
  2. AMILORIDE AND FUROSEMIDE [Suspect]
     Indication: OEDEMA
     Route: 048
  3. ATENOLOL [Concomitant]
     Indication: HYPERTENSION
     Route: 048
  4. BETAHISTINE HYDROCHLORIDE [Concomitant]
     Indication: VERTIGO
     Route: 048
  5. FENOFIBRATE [Concomitant]
     Indication: HYPERCHOLESTEROLAEMIA
     Route: 048
  6. FENOFIBRATE [Concomitant]
     Indication: HYPERTRIGLYCERIDAEMIA
     Route: 048
  7. LEVOTHYROXINE SODIUM [Concomitant]
     Indication: HYPOTHYROIDISM
     Route: 048
  8. MELILOT AND RUTIN [Concomitant]
     Indication: VENOUS INSUFFICIENCY
     Route: 048
  9. PREDNISONE [Concomitant]
     Indication: LOCALISED OSTEOARTHRITIS
     Route: 048
     Dates: start: 20040511
  10. VIOXX [Suspect]
     Indication: LOCALISED OSTEOARTHRITIS
     Route: 048
     Dates: start: 20040507, end: 20040510

REACTIONS (10)
  - ACIDOSIS [None]
  - BLOOD GLUCOSE INCREASED [None]
  - BODY TEMPERATURE DECREASED [None]
  - DRUG INEFFECTIVE [None]
  - FEELING ABNORMAL [None]
  - HYPERKALAEMIA [None]
  - HYPONATRAEMIA [None]
  - LOCALISED OSTEOARTHRITIS [None]
  - OXYGEN SATURATION DECREASED [None]
  - RENAL FAILURE ACUTE [None]
